FAERS Safety Report 11008966 (Version 3)
Quarter: 2015Q2

REPORT INFORMATION
  Report Type: Spontaneous
  Country: US (occurrence: US)
  Receive Date: 20150410
  Receipt Date: 20150504
  Transmission Date: 20150821
  Serious: No
  Sender: FDA-Public Use
  Company Number: US-PFIZER INC-2015121623

PATIENT
  Age: 46 Year
  Sex: Female
  Weight: 54 kg

DRUGS (2)
  1. ADVIL [Suspect]
     Active Substance: IBUPROFEN
     Dosage: 400 MG, 3X/DAY
     Dates: end: 20150407
  2. CORN STARCH [Suspect]
     Active Substance: STARCH, CORN
     Dosage: UNK UNK, 3X/DAY
     Dates: end: 20150407

REACTIONS (2)
  - Reaction to drug excipients [Unknown]
  - Food allergy [Unknown]

NARRATIVE: CASE EVENT DATE: 2014
